FAERS Safety Report 22111313 (Version 1)
Quarter: 2023Q1

REPORT INFORMATION
  Report Type: Spontaneous
  Country: US (occurrence: US)
  Receive Date: 20230317
  Receipt Date: 20230317
  Transmission Date: 20230418
  Serious: Yes (Other)
  Sender: FDA-Public Use
  Company Number: US-BRACCO-2023US01165

PATIENT
  Age: 64 Year
  Sex: Male

DRUGS (1)
  1. ISOVUE 370 [Suspect]
     Active Substance: IOPAMIDOL
     Indication: Angiocardiogram
     Dosage: 220 ML, SINGLE
     Route: 042

REACTIONS (1)
  - Neurotoxicity [Recovered/Resolved]
